FAERS Safety Report 10689403 (Version 2)
Quarter: 2015Q2

REPORT INFORMATION
  Report Type: Report from Study
  Country: US (occurrence: US)
  Receive Date: 20150105
  Receipt Date: 20150610
  Transmission Date: 20150821
  Serious: Yes (Hospitalization, Other)
  Sender: FDA-Public Use
  Company Number: US-BIOGENIDEC-2014BI137226

PATIENT
  Age: 45 Year
  Sex: Female

DRUGS (3)
  1. TYSABRI [Suspect]
     Active Substance: NATALIZUMAB
     Indication: MULTIPLE SCLEROSIS
     Route: 042
     Dates: start: 20090708
  2. TYSABRI [Suspect]
     Active Substance: NATALIZUMAB
     Indication: MULTIPLE SCLEROSIS
     Route: 042
     Dates: start: 20050127
  3. TYSABRI [Suspect]
     Active Substance: NATALIZUMAB
     Indication: MULTIPLE SCLEROSIS
     Route: 042
     Dates: start: 20080116, end: 20090114

REACTIONS (9)
  - Uterine cancer [Recovered/Resolved]
  - Fatigue [Not Recovered/Not Resolved]
  - Arthralgia [Not Recovered/Not Resolved]
  - Weight increased [Not Recovered/Not Resolved]
  - Bladder disorder [Not Recovered/Not Resolved]
  - Skin cancer [Recovered/Resolved]
  - Neoplasm malignant [Unknown]
  - Multiple sclerosis [Not Recovered/Not Resolved]
  - Pulmonary mass [Not Recovered/Not Resolved]

NARRATIVE: CASE EVENT DATE: 201409
